FAERS Safety Report 9108832 (Version 1)
Quarter: 2013Q1

REPORT INFORMATION
  Report Type: Spontaneous
  Country: GB (occurrence: GB)
  Receive Date: 20130222
  Receipt Date: 20130222
  Transmission Date: 20140127
  Serious: Yes (Other)
  Sender: FDA-Public Use
  Company Number: GB-ABBOTT-13P-167-1051098-00

PATIENT
  Sex: Male

DRUGS (5)
  1. NORVIR [Suspect]
     Indication: PRODUCT USED FOR UNKNOWN INDICATION
     Dates: start: 201112
  2. ISENTRESS [Suspect]
     Indication: ANTIRETROVIRAL THERAPY
     Dosage: PHARMACEUTICAL FORM 245
     Dates: start: 201112
  3. ETRAVIRINE [Suspect]
     Indication: PRODUCT USED FOR UNKNOWN INDICATION
     Dates: start: 201112
  4. DARUNAVIR [Suspect]
     Indication: PRODUCT USED FOR UNKNOWN INDICATION
     Dates: start: 201112
  5. UNSPECIFIED OPIATES [Concomitant]
     Indication: BACK PAIN

REACTIONS (6)
  - Renal impairment [Unknown]
  - Renal failure acute [Unknown]
  - Urine abnormality [Unknown]
  - Renal embolism [Unknown]
  - Obstructive uropathy [Unknown]
  - Ureteral stent removal [Unknown]
